FAERS Safety Report 22211583 (Version 1)
Quarter: 2023Q2

REPORT INFORMATION
  Report Type: Report from Study
  Country: IT (occurrence: IT)
  Receive Date: 20230414
  Receipt Date: 20230414
  Transmission Date: 20230722
  Serious: Yes (Other)
  Sender: FDA-Public Use
  Company Number: IT-GLAXOSMITHKLINE-IT2023EME054073

PATIENT

DRUGS (1)
  1. BELANTAMAB MAFODOTIN [Suspect]
     Active Substance: BELANTAMAB MAFODOTIN
     Indication: Plasma cell myeloma
     Dosage: 2.5MG/KG EVERY 3 WEEKS
     Dates: start: 20220314, end: 20230123

REACTIONS (4)
  - Blindness [Not Recovered/Not Resolved]
  - Corneal toxicity [Not Recovered/Not Resolved]
  - Visual acuity reduced [Recovered/Resolved]
  - Keratopathy [Not Recovered/Not Resolved]

NARRATIVE: CASE EVENT DATE: 20220421
